FAERS Safety Report 8416234-5 (Version None)
Quarter: 2012Q2

REPORT INFORMATION
  Report Type: 
  Country: None (occurrence: None)
  Receive Date: 20120606
  Receipt Date: 20120531
  Transmission Date: 20120825
  Serious: Yes (Life-Threatening)
  Sender: FDA-Public Use
  Company Number: SE-ROCHE-1075495

PATIENT
  Sex: Female

DRUGS (8)
  1. POTASSIUM CHLORIDE [Concomitant]
  2. RAMIPRIL [Concomitant]
  3. LEVOTHYROXINE SODIUM [Concomitant]
  4. ASPIRIN [Concomitant]
  5. TARGINIQ [Concomitant]
  6. ARCOXIA [Concomitant]
  7. ACTIVASE [Suspect]
     Indication: PRODUCT USED FOR UNKNOWN INDICATION
     Route: 042
     Dates: start: 20120413, end: 20120413
  8. ESIDRIX [Concomitant]

REACTIONS (3)
  - TONGUE OEDEMA [None]
  - ANAPHYLACTIC SHOCK [None]
  - ANGIOEDEMA [None]
